FAERS Safety Report 11893968 (Version 2)
Quarter: 2016Q1

REPORT INFORMATION
  Report Type: Spontaneous
  Country: FR (occurrence: FR)
  Receive Date: 20160107
  Receipt Date: 20160215
  Transmission Date: 20160526
  Serious: Yes (Other)
  Sender: FDA-Public Use
  Company Number: FR-ROCHE-1689376

PATIENT
  Age: 61 Year
  Sex: Female

DRUGS (5)
  1. ROACTEMRA [Suspect]
     Active Substance: TOCILIZUMAB
     Indication: RHEUMATOID ARTHRITIS
     Route: 042
     Dates: start: 2005, end: 201512
  2. BECOTIDE [Concomitant]
     Active Substance: BECLOMETHASONE DIPROPIONATE
  3. APROVEL [Concomitant]
     Active Substance: IRBESARTAN
     Route: 065
  4. VENTOLINE [Concomitant]
     Active Substance: ALBUTEROL
  5. SPECIAFOLDINE [Concomitant]
     Active Substance: FOLIC ACID

REACTIONS (2)
  - Rectal adenocarcinoma [Not Recovered/Not Resolved]
  - Rectal cancer [Unknown]

NARRATIVE: CASE EVENT DATE: 20151208
